FAERS Safety Report 12939715 (Version 1)
Quarter: 2016Q4

REPORT INFORMATION
  Report Type: Spontaneous
  Country: AT (occurrence: AT)
  Receive Date: 20161114
  Receipt Date: 20161114
  Transmission Date: 20170207
  Serious: Yes (Death, Hospitalization, Other)
  Sender: FDA-Public Use
  Company Number: AT-GILEAD-2016-0242754

PATIENT
  Age: 83 Year
  Sex: Female

DRUGS (3)
  1. RITUXIMAB [Concomitant]
     Active Substance: RITUXIMAB
  2. ZYDELIG [Suspect]
     Active Substance: IDELALISIB
     Indication: CHRONIC LYMPHOCYTIC LEUKAEMIA
     Dosage: 150 MG, UNK
     Route: 065
     Dates: start: 20160105
  3. ZYDELIG [Suspect]
     Active Substance: IDELALISIB
     Dosage: 100 MG, UNK
     Route: 065
     Dates: start: 201604, end: 20160601

REACTIONS (3)
  - Procedural intestinal perforation [Fatal]
  - Colitis [Unknown]
  - Transaminases increased [Unknown]

NARRATIVE: CASE EVENT DATE: 201602
